FAERS Safety Report 20348985 (Version 2)
Quarter: 2022Q2

REPORT INFORMATION
  Report Type: Report from Study
  Country: US (occurrence: US)
  Receive Date: 20220119
  Receipt Date: 20220427
  Transmission Date: 20220721
  Serious: No
  Sender: FDA-Public Use
  Company Number: US-Ipsen Biopharmaceuticals, Inc.-2022-00756

PATIENT
  Age: 62 Year
  Sex: Female

DRUGS (1)
  1. SOMATULINE DEPOT [Suspect]
     Active Substance: LANREOTIDE ACETATE
     Indication: Carcinoid tumour of the small bowel
     Route: 058
     Dates: start: 202106

REACTIONS (4)
  - Abdominal distension [Recovering/Resolving]
  - Flatulence [Not Recovered/Not Resolved]
  - Arthralgia [Recovering/Resolving]
  - Blood glucose decreased [Recovering/Resolving]
